FAERS Safety Report 7354996-9 (Version None)
Quarter: 2011Q1

REPORT INFORMATION
  Report Type: 
  Country: None (occurrence: None)
  Receive Date: 20110316
  Receipt Date: 20100909
  Transmission Date: 20110831
  Serious: Yes (Hospitalization, Other)
  Sender: FDA-Public Use
  Company Number: US-BAYER-201018578NA

PATIENT
  Sex: Female
  Weight: 72.562 kg

DRUGS (9)
  1. ACCUTANE [Concomitant]
     Dosage: 40 NOT APPL., BID
     Dates: start: 20080925
  2. YASMIN [Suspect]
     Indication: MENSTRUATION IRREGULAR
     Dosage: 0.03 MG, QD
     Route: 048
     Dates: start: 20070101, end: 20080101
  3. YAZ [Suspect]
     Indication: MENSTRUATION IRREGULAR
     Dosage: UNK UNK, QD
     Route: 048
     Dates: start: 20070101, end: 20080101
  4. ACCUTANE [Concomitant]
     Indication: ACNE
     Dosage: 10 MG, QD
     Dates: start: 20050424
  5. SOTRET [Concomitant]
     Dosage: 30 MG, UNK
  6. OCELLA [Suspect]
     Indication: MENSTRUATION IRREGULAR
     Dosage: UNK UNK, QD
     Dates: start: 20070101, end: 20080101
  7. ACCUTANE [Concomitant]
     Dosage: 40 NOT APPL., QD
     Dates: start: 20050808
  8. SYNTHROID [Concomitant]
     Dosage: UNK MCG/24HR, UNK
  9. NASONEX [Concomitant]

REACTIONS (2)
  - PAIN [None]
  - PULMONARY EMBOLISM [None]
